FAERS Safety Report 19550026 (Version 1)
Quarter: 2021Q3

REPORT INFORMATION
  Report Type: Spontaneous
  Country: US (occurrence: US)
  Receive Date: 20210715
  Receipt Date: 20210715
  Transmission Date: 20211014
  Serious: Yes (Hospitalization)
  Sender: FDA-Public Use
  Company Number: None

PATIENT
  Age: 79 Year
  Sex: Female

DRUGS (27)
  1. LANTUS SOLOS [Concomitant]
  2. METRONIDAZOL [Concomitant]
     Active Substance: METRONIDAZOLE
  3. AIODARONE [Concomitant]
  4. AMLODIPINE [Concomitant]
     Active Substance: AMLODIPINE BESYLATE
  5. ASPIRIN. [Concomitant]
     Active Substance: ASPIRIN
  6. DOXYCYCL HYC [Concomitant]
     Active Substance: DOXYCYCLINE HYCLATE
  7. INSULIN LSP [Concomitant]
  8. SOTALOL HCL [Concomitant]
     Active Substance: SOTALOL
  9. ALLOPURINOL. [Concomitant]
     Active Substance: ALLOPURINOL
  10. CIPROFLOXACIN. [Concomitant]
     Active Substance: CIPROFLOXACIN
  11. CITALOPRAM [Concomitant]
     Active Substance: CITALOPRAM HYDROBROMIDE
  12. OFLOXACIN. [Concomitant]
     Active Substance: OFLOXACIN
  13. DIGOXIN. [Concomitant]
     Active Substance: DIGOXIN
  14. IPRATROPIUM SPR [Concomitant]
  15. LANTUS [Concomitant]
     Active Substance: INSULIN GLARGINE
  16. MAGNESIUM?OX [Concomitant]
  17. METOPROL SUC ER [Concomitant]
     Active Substance: METOPROLOL SUCCINATE
  18. INTROFURANTIN [Concomitant]
  19. POT CHLORIDE ER [Concomitant]
  20. VITAMIN D [Concomitant]
     Active Substance: VITAMIN D NOS
  21. SILDENAFIL 20MG TAB [Suspect]
     Active Substance: SILDENAFIL
     Indication: PULMONARY HYPERTENSION
     Route: 048
     Dates: start: 20191220
  22. GLIPIZIDE. [Concomitant]
     Active Substance: GLIPIZIDE
  23. NITROFUR MAC [Concomitant]
     Active Substance: NITROFURANTOIN
  24. CEFDINIR. [Concomitant]
     Active Substance: CEFDINIR
  25. MESALAMINE. [Concomitant]
     Active Substance: MESALAMINE
  26. METOLAZONE. [Concomitant]
     Active Substance: METOLAZONE
  27. PHENAZOPYRID [Concomitant]

REACTIONS (2)
  - Therapy interrupted [None]
  - Cardiac ablation [None]

NARRATIVE: CASE EVENT DATE: 20210712
